FAERS Safety Report 23061390 (Version 1)
Quarter: 2023Q4

REPORT INFORMATION
  Report Type: Spontaneous
  Country: PL (occurrence: PL)
  Receive Date: 20231013
  Receipt Date: 20231013
  Transmission Date: 20240110
  Serious: Yes (Hospitalization)
  Sender: FDA-Public Use
  Company Number: None

PATIENT
  Age: 66 Year
  Sex: Female
  Weight: 72 kg

DRUGS (2)
  1. LAPATINIB [Suspect]
     Active Substance: LAPATINIB
     Indication: Breast cancer
     Dosage: 250 MG
     Route: 048
     Dates: start: 20190516, end: 20190530
  2. CAPECITABINE [Suspect]
     Active Substance: CAPECITABINE
     Indication: Breast cancer
     Dosage: 350 MG
     Route: 048
     Dates: start: 20190516, end: 20190530

REACTIONS (3)
  - Arteriospasm coronary [Unknown]
  - Angina unstable [Unknown]
  - Renal failure [Unknown]

NARRATIVE: CASE EVENT DATE: 20190613
